FAERS Safety Report 10712591 (Version 2)
Quarter: 2015Q1

REPORT INFORMATION
  Report Type: Report from Study
  Country: US (occurrence: US)
  Receive Date: 20150115
  Receipt Date: 20150227
  Transmission Date: 20150721
  Serious: Yes (Other)
  Sender: FDA-Public Use
  Company Number: US-BIOGENIDEC-2015BI004352

PATIENT
  Age: 53 Year
  Sex: Male

DRUGS (1)
  1. AVONEX [Suspect]
     Active Substance: INTERFERON BETA-1A
     Indication: MULTIPLE SCLEROSIS
     Route: 030
     Dates: start: 20110922

REACTIONS (5)
  - Injection site induration [Recovered/Resolved]
  - Arthralgia [Unknown]
  - Myalgia [Recovered/Resolved]
  - Cutaneous sarcoidosis [Recovered/Resolved]
  - Muscle fatigue [Unknown]

NARRATIVE: CASE EVENT DATE: 2014
